FAERS Safety Report 15715399 (Version 28)
Quarter: 2019Q4

REPORT INFORMATION
  Report Type: Spontaneous
  Country: US (occurrence: US)
  Receive Date: 20181212
  Receipt Date: 20191028
  Transmission Date: 20200122
  Serious: Yes (Other)
  Sender: FDA-Public Use
  Company Number: US-PFIZER INC-2018335128

PATIENT
  Age: 94 Year
  Sex: Female
  Weight: 55.79 kg

DRUGS (10)
  1. PHOSPHOLINE IODIDE [Suspect]
     Active Substance: ECHOTHIOPHATE IODIDE
     Dosage: UNK, 3X/DAY
     Route: 047
  2. PHOSPHOLINE IODIDE [Suspect]
     Active Substance: ECHOTHIOPHATE IODIDE
     Dosage: 1 GTT, 2X/DAY
     Route: 047
  3. PHOSPHOLINE IODIDE [Suspect]
     Active Substance: ECHOTHIOPHATE IODIDE
     Dosage: 1 GTT, 2X/DAY (IN THE RIGHTY)
     Route: 047
  4. PHOSPHOLINE IODIDE [Suspect]
     Active Substance: ECHOTHIOPHATE IODIDE
     Dosage: 1 GTT, 2X/DAY (ONE DROP IN THE RIGHT EYE TWO TIMES A DAY)
     Route: 047
  5. TRAVATAN [Concomitant]
     Active Substance: TRAVOPROST
     Indication: GLAUCOMA
  6. ALPHAGAN P [Concomitant]
     Active Substance: BRIMONIDINE TARTRATE
     Indication: GLAUCOMA
     Dosage: 1 GTT, 2X/DAY (ONE DROP IN RIGHT EYE TWICE A DAY)
  7. TRAVATAN [Concomitant]
     Active Substance: TRAVOPROST
     Indication: VISUAL IMPAIRMENT
     Dosage: 2 GTT, UNK (ONE DROP IN BOTH EYES)
  8. PHOSPHOLINE IODIDE [Suspect]
     Active Substance: ECHOTHIOPHATE IODIDE
     Dosage: 5 GTT, 3X/DAY
     Route: 047
  9. PHOSPHOLINE IODIDE [Suspect]
     Active Substance: ECHOTHIOPHATE IODIDE
     Indication: GLAUCOMA
     Dosage: 625 MG, TWICE A DAY (MORNING AND NIGHT/0.125%, 625 MG)
     Route: 047
  10. PANOPTIC [Concomitant]
     Indication: GLAUCOMA
     Dosage: 1 GTT, 2X/DAY (ONE DROP IN HER RIGHT EYE TWICE A DAY)

REACTIONS (15)
  - Product dispensing error [Unknown]
  - Intentional product misuse [Unknown]
  - Memory impairment [Unknown]
  - Eye disorder [Unknown]
  - Poor quality product administered [Unknown]
  - Tremor [Unknown]
  - Dyspnoea [Unknown]
  - Wrong technique in product usage process [Unknown]
  - Pyrexia [Unknown]
  - Product quality issue [Unknown]
  - Blindness [Unknown]
  - Loss of consciousness [Unknown]
  - Depression [Unknown]
  - Malaise [Unknown]
  - Dysarthria [Unknown]

NARRATIVE: CASE EVENT DATE: 2018
